FAERS Safety Report 7110847-9 (Version None)
Quarter: 2010Q4

REPORT INFORMATION
  Report Type: 
  Country: None (occurrence: None)
  Receive Date: 20101116
  Receipt Date: 20101116
  Transmission Date: 20110411
  Serious: Yes (Other)
  Sender: FDA-Public Use
  Company Number: None

PATIENT
  Sex: Male
  Weight: 14.0615 kg

DRUGS (4)
  1. AUGMENTIN ES-600 [Suspect]
     Indication: CONJUNCTIVITIS
     Dosage: 1 TEASPOON TWICE DAILY PO
     Route: 048
     Dates: start: 20101105, end: 20101107
  2. AUGMENTIN ES-600 [Suspect]
     Indication: EAR INFECTION
     Dosage: 1 TEASPOON TWICE DAILY PO
     Route: 048
     Dates: start: 20101105, end: 20101107
  3. AUGMENTIN ES-600 [Suspect]
     Indication: UPPER RESPIRATORY TRACT INFECTION
     Dosage: 1 TEASPOON TWICE DAILY PO
     Route: 048
     Dates: start: 20101105, end: 20101107
  4. . [Concomitant]

REACTIONS (3)
  - PAIN IN EXTREMITY [None]
  - PRURITUS [None]
  - URTICARIA [None]
